FAERS Safety Report 6192393-2 (Version None)
Quarter: 2009Q2

REPORT INFORMATION
  Report Type: 
  Country: None (occurrence: None)
  Receive Date: 20090513
  Receipt Date: 20090513
  Transmission Date: 20091009
  Serious: Yes (Hospitalization)
  Sender: FDA-Public Use
  Company Number: None

PATIENT
  Sex: Female
  Weight: 89.8122 kg

DRUGS (6)
  1. CLINDAMYCIN HCL [Suspect]
     Indication: BACTERIAL INFECTION
     Dosage: 2 DAILY TWICE A DAY 600 DAILY BYMOUTH; 3 DAILY TWICE A DAY 900MG DAILY BY MOUTH
     Route: 048
     Dates: start: 20090410, end: 20090415
  2. CLINDAMYCIN HCL [Suspect]
     Indication: GINGIVAL INFECTION
     Dosage: 2 DAILY TWICE A DAY 600 DAILY BYMOUTH; 3 DAILY TWICE A DAY 900MG DAILY BY MOUTH
     Route: 048
     Dates: start: 20090410, end: 20090415
  3. CLINDAMYCIN HCL [Suspect]
     Indication: ORAL SURGERY
     Dosage: 2 DAILY TWICE A DAY 600 DAILY BYMOUTH; 3 DAILY TWICE A DAY 900MG DAILY BY MOUTH
     Route: 048
     Dates: start: 20090410, end: 20090415
  4. CLINDAMYCIN HCL [Suspect]
     Indication: BACTERIAL INFECTION
     Dosage: 2 DAILY TWICE A DAY 600 DAILY BYMOUTH; 3 DAILY TWICE A DAY 900MG DAILY BY MOUTH
     Route: 048
     Dates: start: 20090416, end: 20090418
  5. CLINDAMYCIN HCL [Suspect]
     Indication: GINGIVAL INFECTION
     Dosage: 2 DAILY TWICE A DAY 600 DAILY BYMOUTH; 3 DAILY TWICE A DAY 900MG DAILY BY MOUTH
     Route: 048
     Dates: start: 20090416, end: 20090418
  6. CLINDAMYCIN HCL [Suspect]
     Indication: ORAL SURGERY
     Dosage: 2 DAILY TWICE A DAY 600 DAILY BYMOUTH; 3 DAILY TWICE A DAY 900MG DAILY BY MOUTH
     Route: 048
     Dates: start: 20090416, end: 20090418

REACTIONS (5)
  - CANDIDIASIS [None]
  - CHILLS [None]
  - LIP SWELLING [None]
  - PRURITUS [None]
  - URTICARIA [None]
